FAERS Safety Report 7773095-5 (Version None)
Quarter: 2011Q3

REPORT INFORMATION
  Report Type: 
  Country: None (occurrence: None)
  Receive Date: 20110922
  Receipt Date: 20100802
  Transmission Date: 20111222
  Serious: Yes (Other)
  Sender: FDA-Public Use
  Company Number: US-ASTRAZENECA-2007UW06159

PATIENT
  Age: 225 Month
  Sex: Female
  Weight: 89.8 kg

DRUGS (19)
  1. SEROQUEL [Suspect]
     Dosage: 25-100 MG
     Route: 048
     Dates: start: 20020716, end: 20030113
  2. DESYREL [Concomitant]
     Dates: start: 20020717
  3. SEROQUEL [Suspect]
     Dosage: 25-100 MG
     Route: 048
     Dates: start: 20020716, end: 20030113
  4. SEROQUEL [Suspect]
     Route: 048
     Dates: start: 20020716, end: 20030802
  5. PAXIL [Concomitant]
     Dosage: 12.5-40 MG
     Route: 048
     Dates: start: 20020706, end: 20030113
  6. RISPERDAL [Concomitant]
     Indication: BIPOLAR DISORDER
     Dosage: 1-2 MG
     Dates: start: 20030113, end: 20030101
  7. SEROQUEL [Suspect]
     Route: 048
     Dates: start: 20020716, end: 20030802
  8. PAXIL [Concomitant]
     Dates: start: 20040428
  9. SEROQUEL [Suspect]
     Dosage: 25-100 MG
     Route: 048
     Dates: start: 20020716, end: 20030113
  10. SEROQUEL [Suspect]
     Route: 048
     Dates: start: 20020716, end: 20030802
  11. TRILEPTAL [Concomitant]
     Dates: start: 20030101
  12. SEROQUEL [Suspect]
     Route: 048
     Dates: start: 20020716, end: 20030802
  13. SEROQUEL [Suspect]
     Indication: TACHYPHRENIA
     Route: 048
     Dates: start: 20020610, end: 20021003
  14. DEPAKOTE ER [Concomitant]
     Dates: start: 20020716, end: 20030113
  15. LITHIUM CARBONATE [Concomitant]
     Indication: AFFECTIVE DISORDER
     Dosage: 300
     Dates: start: 20020718, end: 20030113
  16. SEROQUEL [Suspect]
     Indication: BIPOLAR DISORDER
     Route: 048
     Dates: start: 20020610, end: 20021003
  17. SEROQUEL [Suspect]
     Indication: ANXIETY
     Route: 048
     Dates: start: 20020610, end: 20021003
  18. SEROQUEL [Suspect]
     Dosage: 25-100 MG
     Route: 048
     Dates: start: 20020716, end: 20030113
  19. SEROQUEL [Suspect]
     Indication: SCHIZOAFFECTIVE DISORDER
     Route: 048
     Dates: start: 20020610, end: 20021003

REACTIONS (7)
  - MOVEMENT DISORDER [None]
  - GLUCOSE TOLERANCE IMPAIRED [None]
  - TYPE 2 DIABETES MELLITUS [None]
  - HYPERGLYCAEMIA [None]
  - INSULIN RESISTANT DIABETES [None]
  - TARDIVE DYSKINESIA [None]
  - DYSARTHRIA [None]
